FAERS Safety Report 17431227 (Version 1)
Quarter: 2020Q1

REPORT INFORMATION
  Report Type: Spontaneous
  Country: CN (occurrence: CN)
  Receive Date: 20200218
  Receipt Date: 20200218
  Transmission Date: 20200409
  Serious: Yes (Other)
  Sender: FDA-Public Use
  Company Number: CN-NOVOPROD-712242

PATIENT
  Age: 50 Year
  Sex: Male
  Weight: 69 kg

DRUGS (5)
  1. NOVORAPID [Suspect]
     Active Substance: INSULIN ASPART
     Indication: TYPE 2 DIABETES MELLITUS
     Dosage: 8 IU, TID
     Route: 058
     Dates: start: 20200126, end: 20200204
  2. LANTUS [Suspect]
     Active Substance: INSULIN GLARGINE
     Indication: TYPE 2 DIABETES MELLITUS
     Dosage: 16 IU, QD
     Route: 058
     Dates: start: 20200126, end: 20200204
  3. PANCREATIC KININOGENASE [Suspect]
     Active Substance: KALLIDINOGENASE
     Indication: CARDIOVASCULAR DISORDER
     Dosage: 40 MG, QD
     Route: 030
     Dates: start: 20200126, end: 20200128
  4. THIOCTIC ACID [Suspect]
     Active Substance: .ALPHA.-LIPOIC ACID
     Indication: ANTIOXIDANT THERAPY
     Dosage: 0.6 G, QD
     Route: 065
     Dates: start: 20200126, end: 20200128
  5. MECOBALAMIN [Suspect]
     Active Substance: METHYLCOBALAMIN
     Indication: NERVOUS SYSTEM DISORDER
     Dosage: 0.5 MG, TID
     Dates: start: 20200126, end: 20200128

REACTIONS (2)
  - Rash [Recovering/Resolving]
  - Drug eruption [Recovering/Resolving]

NARRATIVE: CASE EVENT DATE: 20200127
